FAERS Safety Report 24454303 (Version 2)
Quarter: 2024Q4

REPORT INFORMATION
  Report Type: Report from Study
  Country: US (occurrence: US)
  Receive Date: 20241017
  Receipt Date: 20241018
  Transmission Date: 20250115
  Serious: No
  Sender: ROCHE
  Company Number: US-ROCHE-3469438

PATIENT
  Age: 71 Year
  Sex: Female

DRUGS (4)
  1. RITUXAN [Suspect]
     Active Substance: RITUXIMAB
     Indication: Cerebral amyloid angiopathy
     Dosage: THEN EVERY 6 MONTHS?DAY 1 AND 14?DATE OF SERVICE: 18/SEP/2023, 04/OCT/2023
     Route: 041
  2. ENOXAPARIN [Concomitant]
     Active Substance: ENOXAPARIN
  3. ASPIRIN [Concomitant]
     Active Substance: ASPIRIN
  4. HEPARIN [Concomitant]
     Active Substance: HEPARIN SODIUM

REACTIONS (2)
  - Off label use [Unknown]
  - No adverse event [Unknown]
